FAERS Safety Report 10447046 (Version 1)
Quarter: 2014Q3

REPORT INFORMATION
  Report Type: Spontaneous
  Country: DK (occurrence: FR)
  Receive Date: 20140911
  Receipt Date: 20140911
  Transmission Date: 20150326
  Serious: Yes (Death)
  Sender: FDA-Public Use
  Company Number: FR-FRI-1000070449

PATIENT
  Age: 78 Year
  Sex: Male
  Weight: 87 kg

DRUGS (10)
  1. NISIS [Concomitant]
     Active Substance: VALSARTAN
     Dosage: 80 MG
  2. BISOPROLOL [Concomitant]
     Active Substance: BISOPROLOL
     Dosage: 10 MG
  3. PREVISCAN [Suspect]
     Active Substance: FLUINDIONE
     Dosage: 20 MG
  4. ESCITALOPRAM [Suspect]
     Active Substance: ESCITALOPRAM OXALATE
     Dosage: 20 MG
  5. DEPAMIDE [Concomitant]
     Active Substance: VALPROMIDE
     Dosage: 900 MG
  6. METFORMINE [Concomitant]
     Active Substance: METFORMIN HYDROCHLORIDE
     Dosage: 2550 MG
  7. ZOPICLONE ALTER [Concomitant]
     Active Substance: ZOPICLONE
     Dosage: 5 MG
  8. FUROSEMIDE BAYER [Concomitant]
     Dosage: 40 MG
  9. PULMICORT TURBUHALER [Concomitant]
     Active Substance: BUDESONIDE
     Dosage: 2 DF
     Route: 050
  10. KARDEGIC [Suspect]
     Active Substance: ASPIRIN LYSINE
     Dosage: 75 MG

REACTIONS (1)
  - Subdural haematoma [Fatal]

NARRATIVE: CASE EVENT DATE: 20140531
